FAERS Safety Report 21026158 (Version 1)
Quarter: 2022Q2

REPORT INFORMATION
  Report Type: Other
  Country: US (occurrence: None)
  Receive Date: 20220630
  Receipt Date: 20220630
  Transmission Date: 20220720
  Serious: Yes (Other)
  Sender: FDA-Public Use
  Company Number: US-ROCHE-2688055

PATIENT
  Sex: Female
  Weight: 123.8 kg

DRUGS (29)
  1. XOLAIR [Suspect]
     Active Substance: OMALIZUMAB
     Indication: Asthma
     Dosage: EVERY 4 WEEKS, LAST INFUSION ON 07/JUN/2022
     Route: 058
  2. XOLAIR [Suspect]
     Active Substance: OMALIZUMAB
  3. CLOBETASOL [Concomitant]
     Active Substance: CLOBETASOL
  4. TRIAMCINOLONE ACETONIDE [Concomitant]
     Active Substance: TRIAMCINOLONE ACETONIDE
  5. PREDNISONE [Concomitant]
     Active Substance: PREDNISONE
     Dosage: 18 MG A DAY
  6. FLOVENT HFA [Concomitant]
     Active Substance: FLUTICASONE PROPIONATE
     Dosage: 4 PUFFS DAILY TWICE DAILY
  7. ALPRAZOLAM [Concomitant]
     Active Substance: ALPRAZOLAM
     Dosage: ONCE AT BED TIME
     Route: 048
  8. NORETHINDRONE [Concomitant]
     Active Substance: NORETHINDRONE
     Dosage: ONCE A DAY
     Route: 048
  9. TIZANIDINE [Concomitant]
     Active Substance: TIZANIDINE
     Dosage: THREE TIMES A DAY
     Route: 048
  10. CLOTRIMAZOLE [Concomitant]
     Active Substance: CLOTRIMAZOLE
     Dosage: TWICE A DAY
  11. BUSPIRONE [Concomitant]
     Active Substance: BUSPIRONE HYDROCHLORIDE
     Dosage: ONCE A DAY
     Route: 048
  12. ALBUTEROL SULFATE [Concomitant]
     Active Substance: ALBUTEROL SULFATE
     Dosage: EVERY 4 HOURS AS NEEDED
  13. PROMETHAZINE [Concomitant]
     Active Substance: PROMETHAZINE HYDROCHLORIDE
  14. MONTELUKAST [Concomitant]
     Active Substance: MONTELUKAST SODIUM
     Dosage: ONCE A DAY
  15. HYOSCYAMINE SULFATE [Concomitant]
     Active Substance: HYOSCYAMINE SULFATE
  16. FAMOTIDINE [Concomitant]
     Active Substance: FAMOTIDINE
     Dosage: TWICE A DAY
  17. CETIRIZINE [Concomitant]
     Active Substance: CETIRIZINE HYDROCHLORIDE
     Dosage: ONCE PER DAY
  18. ATROVENT HFA [Concomitant]
     Active Substance: IPRATROPIUM BROMIDE
  19. EPINEPHRINE [Concomitant]
     Active Substance: EPINEPHRINE
  20. TOBRAMYCIN [Concomitant]
     Active Substance: TOBRAMYCIN
  21. SEREVENT DISKUS [Concomitant]
     Active Substance: SALMETEROL XINAFOATE
     Dosage: TWICE A DAY
  22. ONDANSETRON HCL [Concomitant]
     Active Substance: ONDANSETRON HYDROCHLORIDE
  23. NITROGLYCERIN [Concomitant]
     Active Substance: NITROGLYCERIN
  24. PANTOPRAZOLE [Concomitant]
     Active Substance: PANTOPRAZOLE
  25. FLONASE ALLERGY RELIEF [Concomitant]
     Active Substance: FLUTICASONE PROPIONATE
     Dosage: ONCE PER DAY
  26. XOPENEX HFA [Concomitant]
     Active Substance: LEVALBUTEROL TARTRATE
  27. BENADRYL [Concomitant]
     Active Substance: DIPHENHYDRAMINE HYDROCHLORIDE
  28. ZYRTEC [Concomitant]
     Active Substance: CETIRIZINE HYDROCHLORIDE
  29. TYLENOL [Concomitant]
     Active Substance: ACETAMINOPHEN
     Indication: Headache

REACTIONS (20)
  - Rectal haemorrhage [Unknown]
  - Syncope [Unknown]
  - Rosacea [Unknown]
  - Rash [Recovered/Resolved]
  - Sinusitis [Unknown]
  - Abdominal discomfort [Unknown]
  - Lacrimation increased [Unknown]
  - Eye pruritus [Unknown]
  - Abdominal pain [Unknown]
  - Dyspepsia [Unknown]
  - Dizziness [Unknown]
  - Back pain [Unknown]
  - Anaemia [Unknown]
  - Bursitis [Unknown]
  - Palpitations [Unknown]
  - Cardiac flutter [Unknown]
  - Vision blurred [Unknown]
  - Disturbance in attention [Unknown]
  - Urinary tract disorder [Unknown]
  - Bladder disorder [Unknown]
